FAERS Safety Report 9709763 (Version 1)
Quarter: 2013Q4

REPORT INFORMATION
  Report Type: Report from Study
  Country: JP (occurrence: JP)
  Receive Date: 20131126
  Receipt Date: 20131126
  Transmission Date: 20140711
  Serious: Yes (Death, Hospitalization)
  Sender: FDA-Public Use
  Company Number: JP-BRISTOL-MYERS SQUIBB COMPANY-19840453

PATIENT
  Age: 74 Year
  Sex: Male
  Weight: 50 kg

DRUGS (1)
  1. SPRYCEL [Suspect]
     Indication: CHRONIC MYELOID LEUKAEMIA
     Dosage: 5OCT09-7OCT09 70MG?8OCT-18NV09 50MG?19NV09-29JUN11 50MG/D ON EVERY OTHER DY
     Route: 048
     Dates: start: 20091005

REACTIONS (2)
  - Death [Fatal]
  - Pharyngeal cancer [Not Recovered/Not Resolved]
